FAERS Safety Report 15905025 (Version 2)
Quarter: 2019Q1

REPORT INFORMATION
  Report Type: Spontaneous
  Country: JP (occurrence: JP)
  Receive Date: 20190204
  Receipt Date: 20190207
  Transmission Date: 20190417
  Serious: Yes (Other)
  Sender: FDA-Public Use
  Company Number: JP-ROCHE-2254127

PATIENT
  Age: 5 Decade
  Sex: Male

DRUGS (1)
  1. XELODA [Suspect]
     Active Substance: CAPECITABINE
     Indication: COLON CANCER
     Route: 048

REACTIONS (3)
  - Ileus [Unknown]
  - Neoplasm recurrence [Unknown]
  - Off label use [Unknown]
